FAERS Safety Report 7338569-X (Version None)
Quarter: 2011Q1

REPORT INFORMATION
  Report Type: 
  Country: None (occurrence: None)
  Receive Date: 20110308
  Receipt Date: 20110223
  Transmission Date: 20110831
  Serious: Yes (Hospitalization, Other)
  Sender: FDA-Public Use
  Company Number: FR-ELI_LILLY_AND_COMPANY-FR201103001440

PATIENT
  Sex: Female

DRUGS (9)
  1. LEPONEX [Concomitant]
     Dosage: UNK, UNKNOWN
  2. CLONAZEPAM [Concomitant]
     Indication: BIPOLAR I DISORDER
     Dosage: 2 MG, DAILY (1/D)
     Route: 048
  3. HYDROXYZINE                        /00058401/ [Concomitant]
     Indication: BIPOLAR I DISORDER
     Dosage: 75 MG, DAILY (1/D)
     Route: 048
  4. HYDROXYZINE                        /00058401/ [Concomitant]
     Dosage: UNK, UNKNOWN
  5. CYMBALTA [Suspect]
     Indication: BIPOLAR I DISORDER
     Dosage: 60 MG, DAILY (1/D)
     Route: 048
     Dates: start: 20090201
  6. NOZINAN [Concomitant]
     Indication: BIPOLAR I DISORDER
     Dosage: 100 MG, DAILY (1/D)
     Route: 048
     Dates: start: 20090201
  7. NOZINAN [Concomitant]
     Dosage: UNK, UNKNOWN
  8. LEPONEX [Concomitant]
     Indication: BIPOLAR I DISORDER
     Dosage: 300 MG, DAILY (1/D)
     Route: 048
     Dates: start: 20070214
  9. ABILIFY [Concomitant]
     Indication: BIPOLAR I DISORDER
     Dosage: 30 MG, DAILY (1/D)
     Route: 048
     Dates: start: 20090201

REACTIONS (4)
  - FALL [None]
  - FACIAL BONES FRACTURE [None]
  - SEDATION [None]
  - GRAND MAL CONVULSION [None]
